FAERS Safety Report 10520071 (Version 1)
Quarter: 2014Q4

REPORT INFORMATION
  Report Type: Spontaneous
  Country: BR (occurrence: BR)
  Receive Date: 20141015
  Receipt Date: 20141015
  Transmission Date: 20150528
  Serious: Yes (Other)
  Sender: FDA-Public Use
  Company Number: BR-PFIZER INC-2014281219

PATIENT
  Sex: Female

DRUGS (1)
  1. CELEBRA [Suspect]
     Active Substance: CELECOXIB
     Indication: INTERVERTEBRAL DISC PROTRUSION
     Dosage: 200 MG, 2X/DAY

REACTIONS (4)
  - Formication [Unknown]
  - Urinary retention [Unknown]
  - Dizziness [Unknown]
  - Heart rate increased [Unknown]
